FAERS Safety Report 22280979 (Version 1)
Quarter: 2023Q2

REPORT INFORMATION
  Report Type: Spontaneous
  Country: TH (occurrence: TH)
  Receive Date: 20230504
  Receipt Date: 20230504
  Transmission Date: 20230722
  Serious: Yes (Life-Threatening, Hospitalization, Other)
  Sender: FDA-Public Use
  Company Number: None

PATIENT
  Age: 7 Decade
  Sex: Female

DRUGS (3)
  1. DEXAMETHASONE [Suspect]
     Active Substance: DEXAMETHASONE
     Indication: COVID-19 pneumonia
     Dosage: UNK
     Route: 048
  2. PREDNISOLONE [Suspect]
     Active Substance: PREDNISOLONE
     Indication: COVID-19 pneumonia
     Dosage: UNK
     Route: 048
  3. FAVIPIRAVIR [Concomitant]
     Active Substance: FAVIPIRAVIR
     Indication: COVID-19 pneumonia
     Dosage: UNK
     Route: 065

REACTIONS (11)
  - Paranasal cyst [Recovered/Resolved]
  - Serratia infection [Unknown]
  - Mucormycosis [Recovered/Resolved]
  - Periodontitis [Recovered/Resolved]
  - Osteomyelitis fungal [Recovered/Resolved]
  - Klebsiella infection [Unknown]
  - Enterococcal infection [Unknown]
  - Sinusitis [Recovered/Resolved]
  - Pseudomonas infection [Unknown]
  - Mastoiditis [None]
  - Off label use [Unknown]
